FAERS Safety Report 9715253 (Version 3)
Quarter: 2014Q2

REPORT INFORMATION
  Report Type: Spontaneous
  Country: IT (occurrence: IT)
  Receive Date: 20131126
  Receipt Date: 20140516
  Transmission Date: 20141212
  Serious: Yes (Hospitalization)
  Sender: FDA-Public Use
  Company Number: IT-ROCHE-1306438

PATIENT
  Age: 66 Year
  Sex: Female

DRUGS (4)
  1. AVASTIN [Suspect]
     Indication: BREAST CANCER
     Route: 042
     Dates: start: 20130801, end: 20131010
  2. PACLITAXEL [Suspect]
     Indication: PRODUCT USED FOR UNKNOWN INDICATION
     Route: 065
  3. OXYCONTIN [Concomitant]
     Route: 048
  4. PEPTAZOL (ITALY) [Concomitant]
     Indication: PROPHYLAXIS

REACTIONS (3)
  - Eczema [Unknown]
  - Skin fissures [Recovering/Resolving]
  - Dermatitis exfoliative [Recovering/Resolving]
